FAERS Safety Report 9271109 (Version 1)
Quarter: 2013Q2

REPORT INFORMATION
  Report Type: Report from Study
  Country: NL (occurrence: NL)
  Receive Date: 20130506
  Receipt Date: 20130506
  Transmission Date: 20140414
  Serious: Yes (Death)
  Sender: FDA-Public Use
  Company Number: PHHY2013NL043991

PATIENT
  Sex: Male

DRUGS (3)
  1. ZOMETA [Suspect]
     Indication: NEUROENDOCRINE TUMOUR
     Dosage: 4 MG, PER 100 ML ONCE PER 14 DAYS
     Route: 042
  2. ZOMETA [Suspect]
     Dosage: 4 MG, PER 100 ML ONCE PER 14 DAYS
     Route: 042
     Dates: start: 20121221
  3. ZOMETA [Suspect]
     Dosage: 4 MG, PER 100 ML ONCE PER 14 DAYS
     Route: 042
     Dates: start: 20130214

REACTIONS (1)
  - Death [Fatal]
